FAERS Safety Report 8219417-2 (Version None)
Quarter: 2012Q1

REPORT INFORMATION
  Report Type: 
  Country: None (occurrence: None)
  Receive Date: 20120319
  Receipt Date: 20120314
  Transmission Date: 20120608
  Serious: Yes (Death, Other)
  Sender: FDA-Public Use
  Company Number: AU-PFIZER INC-2012054396

PATIENT
  Age: 55 Year
  Sex: Male

DRUGS (8)
  1. PANADOL OSTEO [Concomitant]
     Indication: BACK PAIN
     Dosage: 2 DF, 3X/DAY
     Route: 048
  2. LYRICA [Suspect]
     Indication: PAIN
     Dosage: 150 MG, 2X/DAY
     Route: 048
     Dates: start: 20080801
  3. CYMBALTA [Suspect]
     Indication: DEPRESSION
     Dosage: 60 MG, 1X/DAY
     Route: 048
  4. TRAMADOL [Concomitant]
     Indication: BACK PAIN
     Dosage: 100 MG, 4X/DAY
     Route: 048
     Dates: start: 20080101
  5. ALCOHOL [Suspect]
     Dosage: UNK
  6. DOXYCYCLINE [Concomitant]
     Indication: ROSACEA
     Dosage: 50 MG, 1X/DAY
     Route: 048
  7. OMEPRAZOLE [Concomitant]
     Indication: GASTROOESOPHAGEAL REFLUX DISEASE
     Dosage: 20 MG, 1X/DAY
     Route: 048
  8. LYRICA [Suspect]
     Indication: NEURALGIA

REACTIONS (2)
  - COMPLETED SUICIDE [None]
  - OVERDOSE [None]
